FAERS Safety Report 8757469 (Version 1)
Quarter: 2012Q4

REPORT INFORMATION
  Report Type: 
  Country: US (occurrence: US)
  Receive Date: 20120828
  Receipt Date: 20120828
  Transmission Date: 20130627
  Serious: No
  Sender: FDA-Public Use
  Company Number: US-009507513-1208USA000831

PATIENT

DRUGS (2)
  1. MIRALAX [Suspect]
     Indication: PRODUCT USED FOR UNKNOWN INDICATION
     Dosage: UNK, unk
     Route: 048
     Dates: end: 20120710
  2. MIRALAX [Suspect]
     Dosage: UNK, qd
     Route: 048
     Dates: start: 20120710

REACTIONS (2)
  - Muscle spasms [Unknown]
  - Drug ineffective [Unknown]
